FAERS Safety Report 25591500 (Version 2)
Quarter: 2025Q3

REPORT INFORMATION
  Report Type: Spontaneous
  Country: JP (occurrence: JP)
  Receive Date: 20250722
  Receipt Date: 20250801
  Transmission Date: 20251021
  Serious: Yes (Death, Other)
  Sender: EISAI
  Company Number: JP-Eisai-202504897_LEN-TMC_P_1

PATIENT
  Age: 64 Year
  Sex: Male

DRUGS (1)
  1. LENVIMA [Suspect]
     Active Substance: LENVATINIB
     Indication: Thymic carcinoma
     Dosage: DOSE AND FREQUENCY WERE UNKNOWN
     Dates: start: 20250529, end: 2025

REACTIONS (5)
  - Cardiac failure [Fatal]
  - Renal failure [Fatal]
  - Hepatic failure [Fatal]
  - Tumour lysis syndrome [Unknown]
  - Physical deconditioning [Unknown]

NARRATIVE: CASE EVENT DATE: 20250101
